FAERS Safety Report 6981144-7 (Version None)
Quarter: 2010Q3

REPORT INFORMATION
  Report Type: 
  Country: None (occurrence: None)
  Receive Date: 20100914
  Receipt Date: 20100830
  Transmission Date: 20110219
  Serious: No
  Sender: FDA-Public Use
  Company Number: US-PFIZER INC-2009224803

PATIENT
  Sex: Female
  Weight: 63.492 kg

DRUGS (2)
  1. CHANTIX [Suspect]
     Indication: SMOKING CESSATION THERAPY
     Dosage: UNK
     Dates: start: 20090601, end: 20090101
  2. CHANTIX [Suspect]
     Dosage: UNK
     Route: 048
     Dates: start: 20090601, end: 20090101

REACTIONS (7)
  - BACK PAIN [None]
  - CHANGE OF BOWEL HABIT [None]
  - DECREASED APPETITE [None]
  - HEADACHE [None]
  - INJURY [None]
  - MENSTRUATION IRREGULAR [None]
  - NAUSEA [None]
